FAERS Safety Report 13660967 (Version 3)
Quarter: 2018Q1

REPORT INFORMATION
  Report Type: Spontaneous
  Country: US (occurrence: US)
  Receive Date: 20170616
  Receipt Date: 20180105
  Transmission Date: 20180508
  Serious: Yes (Death, Hospitalization, Other)
  Sender: FDA-Public Use
  Company Number: US-JNJFOC-20170614658

PATIENT
  Sex: Female

DRUGS (1)
  1. IMBRUVICA [Suspect]
     Active Substance: IBRUTINIB
     Indication: CHRONIC LYMPHOCYTIC LEUKAEMIA
     Route: 048
     Dates: start: 20170412, end: 2017

REACTIONS (8)
  - Febrile neutropenia [Unknown]
  - Pancytopenia [Unknown]
  - Nausea [Unknown]
  - Hypercalcaemia [Unknown]
  - Cardiac failure congestive [Unknown]
  - Diarrhoea [Unknown]
  - Vomiting [Unknown]
  - Disease progression [Fatal]
